FAERS Safety Report 8967941 (Version 1)
Quarter: 2012Q4

REPORT INFORMATION
  Report Type: 
  Country: US (occurrence: US)
  Receive Date: 20121218
  Receipt Date: 20121218
  Transmission Date: 20130627
  Serious: Yes (Other)
  Sender: FDA-Public Use
  Company Number: US-009507513-1212USA005472

PATIENT
  Age: 45 Year
  Sex: Male

DRUGS (4)
  1. ZOCOR [Suspect]
     Indication: ATRIAL FLUTTER
     Route: 048
  2. LISINOPRIL [Suspect]
     Indication: ATRIAL FLUTTER
     Route: 048
  3. DILTIAZEM HYDROCHLORIDE [Concomitant]
     Indication: ATRIAL FLUTTER
  4. BUTRANS [Concomitant]

REACTIONS (4)
  - Coma [Recovering/Resolving]
  - Aphasia [Recovering/Resolving]
  - Abasia [Recovering/Resolving]
  - Dyspnoea [Recovering/Resolving]
